FAERS Safety Report 9695004 (Version 2)
Quarter: 2014Q1

REPORT INFORMATION
  Report Type: Spontaneous
  Country: NL (occurrence: NL)
  Receive Date: 20131119
  Receipt Date: 20140109
  Transmission Date: 20141002
  Serious: Yes (Other)
  Sender: FDA-Public Use
  Company Number: NL-JNJFOC-20131107421

PATIENT
  Age: 55 Year
  Sex: Female

DRUGS (1)
  1. DOXORUBICIN HYDROCHLORIDE (CAELYX) [Suspect]
     Indication: OVARIAN CANCER RECURRENT
     Route: 065

REACTIONS (1)
  - Ascites [Recovered/Resolved with Sequelae]
